FAERS Safety Report 16113422 (Version 4)
Quarter: 2019Q2

REPORT INFORMATION
  Report Type: Spontaneous
  Country: US (occurrence: US)
  Receive Date: 20190325
  Receipt Date: 20190426
  Transmission Date: 20190711
  Serious: No
  Sender: FDA-Public Use
  Company Number: US-PFIZER INC-2019123396

PATIENT
  Age: 77 Year
  Sex: Female

DRUGS (2)
  1. ELIQUIS [Suspect]
     Active Substance: APIXABAN
     Dosage: UNK
  2. XELJANZ XR [Suspect]
     Active Substance: TOFACITINIB CITRATE
     Dosage: 11 MG, UNK
     Dates: start: 201902

REACTIONS (8)
  - Stomatitis [Unknown]
  - Rhinorrhoea [Unknown]
  - Sinusitis [Unknown]
  - Bowel movement irregularity [Unknown]
  - Gingival disorder [Unknown]
  - Epistaxis [Unknown]
  - Nasopharyngitis [Unknown]
  - Abdominal pain upper [Unknown]
